FAERS Safety Report 19103008 (Version 4)
Quarter: 2022Q3

REPORT INFORMATION
  Report Type: Spontaneous
  Country: JP (occurrence: JP)
  Receive Date: 20210407
  Receipt Date: 20220715
  Transmission Date: 20221027
  Serious: Yes (Hospitalization, Other)
  Sender: FDA-Public Use
  Company Number: JP-GLAXOSMITHKLINE-JP2020JPN261546

PATIENT

DRUGS (28)
  1. BENLYSTA [Suspect]
     Active Substance: BELIMUMAB
     Indication: Systemic lupus erythematosus
     Dosage: 200 MG, WE
     Route: 058
     Dates: start: 20190108
  2. BENLYSTA [Concomitant]
     Active Substance: BELIMUMAB
     Indication: Systemic lupus erythematosus
     Dosage: 400 MG
     Route: 041
     Dates: start: 20180216, end: 20180315
  3. BENLYSTA [Concomitant]
     Active Substance: BELIMUMAB
     Dosage: 400 UNK
     Route: 041
     Dates: start: 20180424, end: 20180802
  4. BENLYSTA [Concomitant]
     Active Substance: BELIMUMAB
     Dosage: 400 UNK
     Route: 041
     Dates: start: 20180814, end: 20181204
  5. PREDNISOLONE [Suspect]
     Active Substance: PREDNISOLONE
     Dosage: UNK
  6. PREDONINE [Concomitant]
     Active Substance: PREDNISOLONE
     Indication: Systemic lupus erythematosus
     Dosage: 14 MG, 1D
     Route: 048
     Dates: start: 20180216, end: 20180219
  7. PREDONINE [Concomitant]
     Active Substance: PREDNISOLONE
     Dosage: 13 MG, 1D
     Route: 048
     Dates: start: 20180220, end: 20180315
  8. PREDONINE [Concomitant]
     Active Substance: PREDNISOLONE
     Dosage: 12 MG, 1D
     Route: 048
     Dates: start: 20180316, end: 20180412
  9. PREDONINE [Concomitant]
     Active Substance: PREDNISOLONE
     Dosage: 11 MG, 1D
     Route: 048
     Dates: start: 20180413, end: 20180424
  10. PREDONINE [Concomitant]
     Active Substance: PREDNISOLONE
     Dosage: 10 MG, 1D
     Route: 048
     Dates: start: 20180425, end: 20180522
  11. PREDONINE [Concomitant]
     Active Substance: PREDNISOLONE
     Dosage: 9 MG, 1D
     Route: 048
     Dates: start: 20180523, end: 20180619
  12. PREDONINE [Concomitant]
     Active Substance: PREDNISOLONE
     Dosage: 8 MG, 1D
     Route: 048
     Dates: start: 20180620, end: 20180717
  13. PREDONINE [Concomitant]
     Active Substance: PREDNISOLONE
     Dosage: 7 MG, 1D
     Route: 048
     Dates: start: 20180718, end: 20180911
  14. PREDONINE [Concomitant]
     Active Substance: PREDNISOLONE
     Dosage: 6 MG, 1D
     Route: 048
     Dates: start: 20180912
  15. NEORAL [Concomitant]
     Active Substance: CYCLOSPORINE
     Indication: Systemic lupus erythematosus
     Dosage: UNK
     Route: 048
  16. SULFAMETHOXAZOLE\TRIMETHOPRIM [Concomitant]
     Active Substance: SULFAMETHOXAZOLE\TRIMETHOPRIM
     Indication: Antifungal prophylaxis
  17. ITRIZOLE ORAL SOLUTION [Concomitant]
  18. AMEZINIUM METILSULFATE [Concomitant]
     Active Substance: AMEZINIUM METILSULFATE
  19. LINAGLIPTIN [Concomitant]
     Active Substance: LINAGLIPTIN
  20. RABEPRAZOLE SODIUM [Concomitant]
     Active Substance: RABEPRAZOLE SODIUM
     Indication: Prophylaxis
  21. BIO-THREE [Concomitant]
     Active Substance: HERBALS
     Indication: Prophylaxis
  22. TEPRENONE CAPSULES [Concomitant]
  23. ALLOPURINOL [Concomitant]
     Active Substance: ALLOPURINOL
     Dosage: UNK
  24. CARBAZOCHROME SODIUM SULFONATE [Concomitant]
     Active Substance: CARBAZOCHROME SODIUM SULFONATE
     Indication: Prophylaxis
  25. DENOSUMAB [Concomitant]
     Active Substance: DENOSUMAB
     Dosage: UNK
  26. ITRIZOLE (ITRACONAZOLE) [Concomitant]
     Indication: Antifungal prophylaxis
  27. CEFTRIAXONE SODIUM [Concomitant]
     Active Substance: CEFTRIAXONE SODIUM
     Indication: Cellulitis
     Dosage: UNK
     Dates: start: 20180417
  28. VALIXA (VALGANCICLOVIR HYDROCHLORIDE) [Concomitant]
     Dosage: UNK
     Dates: start: 20180412

REACTIONS (2)
  - Myocardial ischaemia [Recovering/Resolving]
  - Vascular stent stenosis [Recovering/Resolving]

NARRATIVE: CASE EVENT DATE: 20190802
